FAERS Safety Report 5085371-8 (Version None)
Quarter: 2006Q3

REPORT INFORMATION
  Report Type: 
  Country: None (occurrence: None)
  Receive Date: 20060817
  Receipt Date: 20060803
  Transmission Date: 20061208
  Serious: Yes (Hospitalization, Disabling, Other)
  Sender: FDA-Public Use
  Company Number: 2006089589

PATIENT
  Age: 55 Year
  Sex: Female

DRUGS (2)
  1. CELEBREX [Suspect]
     Indication: ARTHRITIS
     Dosage: (200 MG, UNKNOWN)
  2. BEXTRA [Suspect]
     Indication: ARTHRITIS
     Dosage: (200 MG, UNKNOWN)

REACTIONS (13)
  - ARTHRITIS [None]
  - AUTOIMMUNE DISORDER [None]
  - CARDIAC FAILURE CONGESTIVE [None]
  - CONDITION AGGRAVATED [None]
  - DEPRESSION [None]
  - LUPUS-LIKE SYNDROME [None]
  - MITRAL VALVE INCOMPETENCE [None]
  - PERICARDIAL EFFUSION [None]
  - PLEURAL EFFUSION [None]
  - POLYSEROSITIS [None]
  - PULMONARY EMBOLISM [None]
  - SUBCLAVIAN ARTERY EMBOLISM [None]
  - TRICUSPID VALVE INCOMPETENCE [None]
